FAERS Safety Report 6173564-8 (Version None)
Quarter: 2009Q2

REPORT INFORMATION
  Report Type: 
  Country: None (occurrence: None)
  Receive Date: 20090430
  Receipt Date: 20090423
  Transmission Date: 20091009
  Serious: Yes (Other)
  Sender: FDA-Public Use
  Company Number: B0572345A

PATIENT
  Age: 37 Year
  Sex: Female

DRUGS (3)
  1. AMOXICILLIN [Suspect]
     Indication: LISTERIOSIS
     Dosage: 4G FOUR TIMES PER DAY
     Route: 042
  2. AMOXICILLIN [Suspect]
     Dosage: 4G FOUR TIMES PER DAY
     Route: 048
  3. AMIKACIN [Suspect]
     Dosage: 500MG PER DAY

REACTIONS (2)
  - DRUG EXPOSURE DURING PREGNANCY [None]
  - PREMATURE RUPTURE OF MEMBRANES [None]
